FAERS Safety Report 25352835 (Version 1)
Quarter: 2025Q2

REPORT INFORMATION
  Report Type: Spontaneous
  Country: GB (occurrence: GB)
  Receive Date: 20250523
  Receipt Date: 20250523
  Transmission Date: 20250716
  Serious: Yes (Other)
  Sender: PFIZER
  Company Number: None

PATIENT
  Age: 54 Year
  Sex: Male

DRUGS (6)
  1. BEVACIZUMAB [Suspect]
     Active Substance: BEVACIZUMAB
     Indication: Colon cancer
     Route: 042
  2. DEXAMETHASONE [Concomitant]
     Active Substance: DEXAMETHASONE
  3. ONDANSETRON [Concomitant]
     Active Substance: ONDANSETRON
  4. OXALIPLATIN [Concomitant]
     Active Substance: OXALIPLATIN
  5. FLUOROURACIL [Concomitant]
     Active Substance: FLUOROURACIL
  6. DEXTROSE [Concomitant]
     Active Substance: DEXTROSE MONOHYDRATE

REACTIONS (4)
  - Spinal fracture [Unknown]
  - Fatigue [Unknown]
  - Constipation [Unknown]
  - Spinal pain [Unknown]

NARRATIVE: CASE EVENT DATE: 20250519
